FAERS Safety Report 18460408 (Version 1)
Quarter: 2020Q4

REPORT INFORMATION
  Report Type: Spontaneous
  Country: US (occurrence: US)
  Receive Date: 20201104
  Receipt Date: 20201104
  Transmission Date: 20210114
  Serious: No
  Sender: FDA-Public Use
  Company Number: US-LUPIN PHARMACEUTICALS INC.-2020-07090

PATIENT
  Age: 77 Year
  Sex: Female
  Weight: 66.67 kg

DRUGS (1)
  1. FLUOCINONIDE TOPICAL SOLUTION USP, 0.05% [Suspect]
     Active Substance: FLUOCINONIDE
     Indication: ALOPECIA
     Dosage: UNK UNK, QD
     Route: 061
     Dates: start: 20200901, end: 20200910

REACTIONS (3)
  - Off label use [Unknown]
  - Product quality issue [Unknown]
  - Skin disorder [Recovered/Resolved]

NARRATIVE: CASE EVENT DATE: 20200901
